FAERS Safety Report 18659010 (Version 2)
Quarter: 2021Q1

REPORT INFORMATION
  Report Type: Report from Study
  Country: US (occurrence: US)
  Receive Date: 20201224
  Receipt Date: 20210103
  Transmission Date: 20210419
  Serious: Yes (Other)
  Sender: FDA-Public Use
  Company Number: US-UCBSA-2020052540

PATIENT
  Age: 49 Year
  Sex: Female
  Weight: 86.18 kg

DRUGS (3)
  1. CERTOLIZUMAB PEGOL [Suspect]
     Active Substance: CERTOLIZUMAB PEGOL
     Indication: PSORIATIC ARTHROPATHY
     Dosage: 200 MILLIGRAM, EV 2 WEEKS(QOW)
     Route: 058
  2. ELIQUIS [Concomitant]
     Active Substance: APIXABAN
     Indication: ANTICOAGULANT THERAPY
     Dosage: 5 MILLIGRAM, 2X/DAY (BID)
     Route: 048
     Dates: start: 20201104
  3. CELEBREX [Concomitant]
     Active Substance: CELECOXIB
     Indication: PSORIATIC ARTHROPATHY
     Dosage: UNK, ONCE DAILY (QD)
     Route: 048

REACTIONS (3)
  - Pulmonary thrombosis [Not Recovered/Not Resolved]
  - COVID-19 [Recovered/Resolved]
  - Tendon injury [Recovered/Resolved]

NARRATIVE: CASE EVENT DATE: 202008
